FAERS Safety Report 9555243 (Version 1)
Quarter: 2013Q3

REPORT INFORMATION
  Report Type: Spontaneous
  Country: US (occurrence: None)
  Receive Date: 20130925
  Receipt Date: 20130925
  Transmission Date: 20140515
  Serious: Yes (Hospitalization)
  Sender: FDA-Public Use
  Company Number: None

PATIENT
  Age: 71 Year
  Sex: Male

DRUGS (13)
  1. TICAGRELOR [Suspect]
     Indication: STENT PLACEMENT
     Dosage: CHRONIC MEDICATION X 6 MONTH
     Route: 048
  2. ACETAMINOPHEN [Concomitant]
  3. ALLOPURINOL [Concomitant]
  4. ALPRAZOLAM [Concomitant]
  5. ASPIRIN EC [Concomitant]
  6. DIPHENHYDRAMINE [Concomitant]
  7. DOBUTAMINE [Concomitant]
  8. DOCUSATE SODIUM [Concomitant]
  9. LORTAB [Concomitant]
  10. VILAZODONE [Concomitant]
  11. HALCION [Concomitant]
  12. LAMOTRIGINE [Concomitant]
  13. MAGNESIUM OXIDE [Concomitant]

REACTIONS (9)
  - Dyspnoea [None]
  - Hypersensitivity [None]
  - Chest discomfort [None]
  - Chest discomfort [None]
  - Pain of skin [None]
  - Wheezing [None]
  - Pruritus generalised [None]
  - Lacrimation increased [None]
  - Refusal of treatment by patient [None]
